FAERS Safety Report 7227887-1 (Version None)
Quarter: 2011Q1

REPORT INFORMATION
  Report Type: 
  Country: None (occurrence: None)
  Receive Date: 20110114
  Receipt Date: 20110107
  Transmission Date: 20110831
  Serious: Yes (Death)
  Sender: FDA-Public Use
  Company Number: US-MERCK-1101USA00911

PATIENT
  Age: 42 Year
  Sex: Female

DRUGS (6)
  1. DULOXETINE HYDROCHLORIDE [Suspect]
     Route: 065
  2. NIFEDIPINE [Suspect]
     Route: 065
  3. ACETAMINOPHEN AND HYDROCODONE BITARTRATE [Suspect]
     Route: 065
  4. SINGULAIR [Suspect]
     Route: 048
  5. QUETIAPINE FUMARATE [Suspect]
     Route: 065
  6. HYDROCHLOROTHIAZIDE AND TELMISARTAN [Suspect]
     Route: 065

REACTIONS (2)
  - OVERDOSE [None]
  - COMPLETED SUICIDE [None]
